FAERS Safety Report 8987419 (Version 1)
Quarter: 2012Q4

REPORT INFORMATION
  Report Type: 
  Country: US (occurrence: US)
  Receive Date: 20121227
  Receipt Date: 20121227
  Transmission Date: 20130627
  Serious: No
  Sender: FDA-Public Use
  Company Number: US-PFIZER INC-2012328062

PATIENT
  Age: 59 Year
  Sex: Female

DRUGS (11)
  1. NEURONTIN [Suspect]
     Dosage: UNK
  2. ZYVOX [Suspect]
     Dosage: UNK
  3. ROBAXIN [Suspect]
     Dosage: UNK
  4. PROZAC [Suspect]
     Dosage: UNK
  5. CODIMAL-L.A. [Suspect]
     Dosage: UNK
  6. UNSPECIFIED INGREDIENT [Suspect]
     Dosage: UNK
  7. OFLOXACIN [Suspect]
     Dosage: UNK
  8. VERSED [Suspect]
     Dosage: UNK
  9. ACTIFED [Suspect]
     Dosage: UNK
  10. DRIXORAL [Suspect]
     Dosage: UNK
  11. CHLORPHENAMINE [Suspect]
     Dosage: UNK

REACTIONS (1)
  - Drug hypersensitivity [Unknown]
